FAERS Safety Report 25059607 (Version 3)
Quarter: 2025Q4

REPORT INFORMATION
  Report Type: Spontaneous
  Country: US (occurrence: US)
  Receive Date: 20250310
  Receipt Date: 20251027
  Transmission Date: 20260117
  Serious: No
  Sender: BIOGEN
  Company Number: US-BIOGEN-2023BI01215304

PATIENT
  Age: 40 Year
  Sex: Female

DRUGS (4)
  1. VUMERITY [Suspect]
     Active Substance: DIROXIMEL FUMARATE
     Indication: Multiple sclerosis
     Dosage: DOSAGE TEXT:START DATE ALSO REPORTED AS: 24-JUN-2023
     Dates: start: 20230621, end: 20230630
  2. VUMERITY [Suspect]
     Active Substance: DIROXIMEL FUMARATE
     Dates: start: 20230701
  3. VUMERITY [Suspect]
     Active Substance: DIROXIMEL FUMARATE
     Dates: start: 202308
  4. VUMERITY [Suspect]
     Active Substance: DIROXIMEL FUMARATE

REACTIONS (6)
  - Diarrhoea [Unknown]
  - Abdominal pain upper [Recovered/Resolved]
  - Abdominal pain [Recovered/Resolved]
  - Anxiety [Unknown]
  - Muscle tightness [Not Recovered/Not Resolved]
  - Weight decreased [Unknown]

NARRATIVE: CASE EVENT DATE: 20230701
